FAERS Safety Report 10143135 (Version 1)
Quarter: 2014Q2

REPORT INFORMATION
  Report Type: Spontaneous
  Country: US (occurrence: None)
  Receive Date: 20140428
  Receipt Date: 20140428
  Transmission Date: 20141212
  Serious: Yes (Other)
  Sender: FDA-Public Use
  Company Number: KAD201404-000414

PATIENT
  Sex: Female

DRUGS (2)
  1. RIBASPHERE [Suspect]
  2. PEGINTRON [Suspect]

REACTIONS (4)
  - Abortion spontaneous [None]
  - Exposure via partner [None]
  - Maternal exposure during pregnancy [None]
  - Haemorrhage [None]
